FAERS Safety Report 5034181-6 (Version None)
Quarter: 2006Q2

REPORT INFORMATION
  Report Type: 
  Country: None (occurrence: None)
  Receive Date: 20060626
  Receipt Date: 20060615
  Transmission Date: 20061013
  Serious: Yes (Other)
  Sender: FDA-Public Use
  Company Number: US-GLAXOSMITHKLINE-A0609493A

PATIENT
  Age: 82 Year
  Sex: Male

DRUGS (12)
  1. AVODART [Suspect]
     Indication: BENIGN PROSTATIC HYPERPLASIA
     Dosage: 1CAP PER DAY
     Route: 048
     Dates: start: 20060401
  2. HYTRIN [Concomitant]
  3. DITROPAN [Concomitant]
  4. PROCARDIA [Concomitant]
  5. LOPRESSOR [Concomitant]
  6. ASPIRIN [Concomitant]
  7. VASOTEC [Concomitant]
  8. POTASSIUM CHLORIDE [Concomitant]
  9. ANTIVERT [Concomitant]
  10. ALDACTONE [Concomitant]
  11. COUMADIN [Concomitant]
  12. PROTONIX [Concomitant]

REACTIONS (6)
  - DIZZINESS [None]
  - DRUG INEFFECTIVE [None]
  - GYNAECOMASTIA [None]
  - HAEMATURIA [None]
  - INCONTINENCE [None]
  - RETROGRADE EJACULATION [None]
